FAERS Safety Report 5822735-6 (Version None)
Quarter: 2008Q3

REPORT INFORMATION
  Report Type: 
  Country: None (occurrence: None)
  Receive Date: 20080725
  Receipt Date: 20070918
  Transmission Date: 20090109
  Serious: No
  Sender: FDA-Public Use
  Company Number: US-AMGEN-KDL251932

PATIENT

DRUGS (1)
  1. PROCRIT [Suspect]
     Indication: DRUG USE FOR UNKNOWN INDICATION
     Dates: start: 20070701

REACTIONS (4)
  - DECREASED APPETITE [None]
  - HEADACHE [None]
  - NAUSEA [None]
  - STOMACH DISCOMFORT [None]
